FAERS Safety Report 7892609-8 (Version None)
Quarter: 2011Q4

REPORT INFORMATION
  Report Type: 
  Country: None (occurrence: None)
  Receive Date: 20111102
  Receipt Date: 20111011
  Transmission Date: 20120403
  Serious: Yes (Hospitalization)
  Sender: FDA-Public Use
  Company Number: 2011PROUSA00432

PATIENT
  Age: 63 Year
  Sex: Male
  Weight: 90.7 kg

DRUGS (9)
  1. CASODEX [Concomitant]
  2. OS-CAL + D (CALCIUM CARBONATE, COLECALCIFEROL) [Concomitant]
  3. NORVASC (MORNIFLUMATE) [Concomitant]
  4. PROVENGE [Suspect]
     Indication: PROSTATE CANCER METASTATIC
     Dosage: 250 ML, SINGLE, INTRAVENOUS
     Route: 042
     Dates: start: 20110623, end: 20110623
  5. MULTIVITAMIN (ASCORBIC ACID, CALCIUM PANTOTHENATE, ERGOCALCIFEROL, NIC [Concomitant]
  6. TOPROL-XL [Concomitant]
  7. ASPIRIN [Concomitant]
  8. CELEBREX [Concomitant]
  9. FLOMAX [Concomitant]

REACTIONS (10)
  - LEUKOCYTOSIS [None]
  - ASTHENIA [None]
  - HYPOTENSION [None]
  - HYPERHIDROSIS [None]
  - SYNCOPE [None]
  - ABDOMINAL PAIN [None]
  - HYPERSENSITIVITY [None]
  - HYPOKALAEMIA [None]
  - DIZZINESS [None]
  - INFUSION RELATED REACTION [None]
